FAERS Safety Report 11105558 (Version 1)
Quarter: 2015Q2

REPORT INFORMATION
  Report Type: Report from Study
  Country: US (occurrence: US)
  Receive Date: 20150512
  Receipt Date: 20150512
  Transmission Date: 20150821
  Serious: No
  Sender: FDA-Public Use
  Company Number: US-ALEXION-A201501608

PATIENT

DRUGS (1)
  1. SOLIRIS [Suspect]
     Active Substance: ECULIZUMAB
     Indication: HAEMOLYTIC URAEMIC SYNDROME
     Dosage: 900 MG, UNK
     Route: 042
     Dates: start: 201504

REACTIONS (4)
  - Blood lactate dehydrogenase abnormal [Unknown]
  - Laboratory test abnormal [Not Recovered/Not Resolved]
  - Platelet count decreased [Unknown]
  - Blood creatinine abnormal [Unknown]
